FAERS Safety Report 10442257 (Version 1)
Quarter: 2014Q2

REPORT INFORMATION
  Report Type: Spontaneous
  Country: US (occurrence: None)
  Receive Date: 20140616
  Receipt Date: 20140616
  Transmission Date: 20141212
  Serious: Yes (Hospitalization, Other)
  Sender: FDA-Public Use
  Company Number: 2012-003074

PATIENT
  Age: 62 Year
  Sex: Female
  Weight: 90.9 kg

DRUGS (15)
  1. ACTONEL (RISEDRONATE SODIUM) TABLET [Suspect]
     Indication: OSTEOPOROSIS
     Route: 048
     Dates: start: 2004, end: 200511
  2. FOSAMAX (ALENDRONATE SODIUM) [Suspect]
     Indication: OSTEOPOROSIS
     Route: 048
     Dates: end: 200304
  3. BONIVA (IBANDRONATE SODIUM) [Suspect]
     Indication: OSTEOPOROSIS
     Route: 048
     Dates: start: 20051122, end: 201005
  4. RECLAST [Suspect]
     Indication: OSTEOPOROSIS
     Route: 042
     Dates: start: 20091203, end: 201005
  5. ENBREL (ETANERCEPT) [Concomitant]
  6. RELAFEN (NABUMETONE) [Concomitant]
  7. VIOXX (ROFECOXIB) [Concomitant]
  8. MOBIC (MELOXICAM) [Concomitant]
  9. VICODIN (HYDROCODONE BITARTRATE, PARACETAMOL) [Concomitant]
  10. PREMARIN (ESTROGENS CONJUGATED) [Concomitant]
  11. LEVOXYL (LEVOTHYROXINE SODIUM) [Concomitant]
  12. HYDROCHLOROTHIAZIDE (HYDROCHLOROTHIAZIDE) [Concomitant]
  13. DITROPAN (OXYBUTYNIN HYDROCHLORIDE) [Concomitant]
  14. VESICARE (SOLIFENACIN SUCCINATE) [Concomitant]
  15. FOLIC ACID (FOLIC ACID) [Concomitant]

REACTIONS (8)
  - Periprosthetic fracture [None]
  - Femur fracture [None]
  - Fracture displacement [None]
  - Fall [None]
  - Arthralgia [None]
  - Oedema peripheral [None]
  - Pain in extremity [None]
  - Fracture nonunion [None]
